FAERS Safety Report 4749533-9 (Version None)
Quarter: 2005Q3

REPORT INFORMATION
  Report Type: 
  Country: None (occurrence: None)
  Receive Date: 20050819
  Receipt Date: 20050819
  Transmission Date: 20060218
  Serious: Yes (Hospitalization)
  Sender: FDA-Public Use
  Company Number: None

PATIENT
  Age: 69 Year
  Sex: Male

DRUGS (9)
  1. CISPLATIN [Suspect]
     Indication: GASTRIC CANCER
     Dosage: 25 MG/M2 DAYS 1 AND 8 IV
     Route: 042
     Dates: start: 20050621, end: 20050802
  2. IRINOTECAN [Suspect]
     Indication: GASTRIC CANCER
     Dosage: 65MG/M2 DAYS 1 AND 8 IV
     Route: 042
     Dates: start: 20050621, end: 20050802
  3. FLUOROURACIL [Suspect]
     Indication: GASTRIC CANCER
     Dosage: 260MG/M2 IV D1-D14
     Route: 042
     Dates: start: 20050621, end: 20050802
  4. PENTAPROZOLE [Concomitant]
  5. INSULIN [Concomitant]
  6. METOPROLOL [Concomitant]
  7. ATIVAN [Concomitant]
  8. COUMADIN [Concomitant]
  9. ZOFRAN [Concomitant]

REACTIONS (4)
  - CELLULITIS [None]
  - DIARRHOEA [None]
  - MALAISE [None]
  - PYREXIA [None]
